FAERS Safety Report 7455611-6 (Version None)
Quarter: 2011Q2

REPORT INFORMATION
  Report Type: 
  Country: None (occurrence: None)
  Receive Date: 20110503
  Receipt Date: 20110427
  Transmission Date: 20111010
  Serious: Yes (Hospitalization)
  Sender: FDA-Public Use
  Company Number: AU-ROCHE-773940

PATIENT

DRUGS (5)
  1. CEFTRIAXONE SODIUM [Suspect]
     Route: 065
     Dates: start: 20110126
  2. RITONAVIR [Suspect]
     Dosage: 1 DOSE UNSPEC DAILY
     Route: 065
     Dates: start: 20110118, end: 20110131
  3. TRUVADA [Suspect]
     Dosage: 1 DOSE UNSPEC 1 TIME
     Route: 065
     Dates: start: 20110118, end: 20110129
  4. ATANAZAVIR [Suspect]
     Route: 065
     Dates: start: 20110118, end: 20110131
  5. CIPROFLOXACIN [Suspect]
     Route: 065
     Dates: start: 20110119, end: 20110131

REACTIONS (4)
  - RENAL TUBULAR NECROSIS [None]
  - EOSINOPHILIA [None]
  - HAEMATURIA [None]
  - RENAL FAILURE ACUTE [None]
